FAERS Safety Report 23435118 (Version 1)
Quarter: 2024Q1

REPORT INFORMATION
  Report Type: Spontaneous
  Country: US (occurrence: US)
  Receive Date: 20240123
  Receipt Date: 20240123
  Transmission Date: 20240409
  Serious: No
  Sender: FDA-Public Use
  Company Number: US-NOVOPROD-1104337

PATIENT
  Age: 42 Year
  Sex: Female

DRUGS (1)
  1. WEGOVY [Suspect]
     Active Substance: SEMAGLUTIDE
     Indication: Weight increased
     Dosage: 2.4 WEEKLY
     Route: 058
     Dates: start: 20230301, end: 20230807

REACTIONS (4)
  - Pain of skin [Recovered/Resolved]
  - Migraine [Recovered/Resolved]
  - Skin sensitisation [Recovered/Resolved]
  - Skin burning sensation [Unknown]

NARRATIVE: CASE EVENT DATE: 20230726
